FAERS Safety Report 8581360-7 (Version None)
Quarter: 2012Q3

REPORT INFORMATION
  Report Type: 
  Country: None (occurrence: None)
  Receive Date: 20120809
  Receipt Date: 20120731
  Transmission Date: 20120928
  Serious: Yes (Other)
  Sender: FDA-Public Use
  Company Number: JP-ASTRAZENECA-2012SE50077

PATIENT
  Age: 60 Year
  Sex: Female
  Weight: 47 kg

DRUGS (8)
  1. SEVOFLURANE [Suspect]
     Dosage: DOSE UNKNOWN
     Route: 065
  2. REMIFENTANIL HYDROCHLORIDE [Suspect]
     Dosage: DOSE UNKNOWN
     Route: 065
  3. FENTANYL [Suspect]
     Indication: GENERAL ANAESTHESIA
     Route: 042
  4. KETAMINE HCL [Suspect]
     Indication: GENERAL ANAESTHESIA
     Route: 065
  5. KETAMINE HCL [Suspect]
     Route: 065
  6. ROCURONIUM BROMIDE [Concomitant]
     Indication: HYPOTONIA
     Route: 065
  7. DIPRIVAN [Suspect]
     Indication: INDUCTION OF ANAESTHESIA
     Route: 042
  8. FENTANYL [Suspect]
     Dosage: DOSE UNKNOWN
     Route: 042

REACTIONS (1)
  - POSTERIOR REVERSIBLE ENCEPHALOPATHY SYNDROME [None]
